FAERS Safety Report 5671837-6 (Version None)
Quarter: 2008Q1

REPORT INFORMATION
  Report Type: 
  Country: None (occurrence: None)
  Receive Date: 20080314
  Receipt Date: 20080311
  Transmission Date: 20080703
  Serious: Yes (Death)
  Sender: FDA-Public Use
  Company Number: 2008-00826

PATIENT
  Age: 61 Year
  Sex: Female
  Weight: 52.5 kg

DRUGS (13)
  1. VELCADE [Suspect]
     Indication: MULTIPLE MYELOMA
     Dosage: 1.30 MG/M2, INTRAVENOUS
     Route: 042
     Dates: start: 20070612, end: 20070710
  2. LEVODROPROPIZINE (LEVODROPROPIZINE) [Concomitant]
  3. THEOLAN-B [Concomitant]
  4. ACETYLCYSTEINE [Concomitant]
  5. BROMHEXINE HYDROCHLORIDE (BROMHEXINE HYDROCHLORIDE) [Concomitant]
  6. SALBUTAMOL SULFATE (SALBUTAMOL SULFATE) [Concomitant]
  7. FENOTEROL HYDROBROMIDE (FENOTEROL HYDROBROMIDE) [Concomitant]
  8. ALPRAZOLAM [Concomitant]
  9. CEFTRIAXONE [Concomitant]
  10. AMPICILLIN SODIUM W/SULBACTAM SODIUM (AMPICILLIN SODIUM, SULBACTAM SOD [Concomitant]
  11. CLARITHROMYCIN [Concomitant]
  12. CEFDITOREN PIVOXIL (CEFDITOREN PIVOXIL) [Concomitant]
  13. FUROSEMIDE [Concomitant]

REACTIONS (1)
  - DEATH [None]
